FAERS Safety Report 8571111-4 (Version None)
Quarter: 2012Q3

REPORT INFORMATION
  Report Type: 
  Country: None (occurrence: None)
  Receive Date: 20120806
  Receipt Date: 20120801
  Transmission Date: 20120928
  Serious: No
  Sender: FDA-Public Use
  Company Number: US-PFIZER INC-2012187451

PATIENT
  Age: 50 Year
  Sex: Female

DRUGS (1)
  1. GABAPENTIN [Suspect]
     Dosage: UNK

REACTIONS (3)
  - DIARRHOEA [None]
  - HEADACHE [None]
  - NAUSEA [None]
